FAERS Safety Report 10538448 (Version 1)
Quarter: 2014Q4

REPORT INFORMATION
  Report Type: Spontaneous
  Country: MY (occurrence: MY)
  Receive Date: 20141023
  Receipt Date: 20141023
  Transmission Date: 20150529
  Serious: Yes (Other)
  Sender: FDA-Public Use
  Company Number: MY-BAYER-2014-152646

PATIENT

DRUGS (1)
  1. NEXAVAR FILM-COATED TABLETS 200MG [Suspect]
     Active Substance: SORAFENIB

REACTIONS (1)
  - Cerebrovascular accident [None]
